FAERS Safety Report 9213307 (Version 2)
Quarter: 2013Q4

REPORT INFORMATION
  Report Type: Spontaneous
  Country: US (occurrence: US)
  Receive Date: 20130405
  Receipt Date: 20131226
  Transmission Date: 20140711
  Serious: Yes (Other)
  Sender: FDA-Public Use
  Company Number: US-BAYER-2013-042579

PATIENT
  Age: 31 Year
  Sex: Female

DRUGS (1)
  1. MIRENA [Suspect]
     Indication: CONTRACEPTION
     Dosage: 20 MCG/24HR, CONT
     Route: 015
     Dates: start: 20121220, end: 20130401

REACTIONS (17)
  - Device dislocation [None]
  - Procedural pain [None]
  - Medical device discomfort [None]
  - Crying [None]
  - Depression [None]
  - Mood swings [None]
  - Abdominal pain lower [None]
  - Back pain [None]
  - Weight increased [None]
  - Alopecia [None]
  - Breast tenderness [None]
  - Hypoaesthesia [None]
  - Fatigue [None]
  - Genital haemorrhage [None]
  - Injury [None]
  - Pain [None]
  - Emotional distress [None]
